FAERS Safety Report 23137304 (Version 2)
Quarter: 2023Q4

REPORT INFORMATION
  Report Type: Spontaneous
  Country: PL (occurrence: PL)
  Receive Date: 20231102
  Receipt Date: 20231208
  Transmission Date: 20240109
  Serious: Yes (Life-Threatening, Other)
  Sender: FDA-Public Use
  Company Number: PL-SANDOZ-NVSC2023PL014419

PATIENT
  Age: 19 Year
  Sex: Male

DRUGS (22)
  1. CYTARABINE [Suspect]
     Active Substance: CYTARABINE
     Indication: High grade B-cell lymphoma Burkitt-like lymphoma
     Dosage: UNK, CYCLIC, Q3W
     Route: 065
     Dates: start: 2020
  2. CYTARABINE [Suspect]
     Active Substance: CYTARABINE
     Dosage: UNK, CYCLIC, CUMULATIVE DOSE: 4 CYCLES, IMMUNOCHEMOTHERAPY (RHYPER-CVAD), Q3W
     Route: 065
  3. CYCLOPHOSPHAMIDE [Suspect]
     Active Substance: CYCLOPHOSPHAMIDE
     Indication: High grade B-cell lymphoma Burkitt-like lymphoma
     Dosage: CUMULATIVE DOSE: 2 CYCLES, Q3W
     Route: 065
  4. CYCLOPHOSPHAMIDE [Suspect]
     Active Substance: CYCLOPHOSPHAMIDE
     Dosage: UNK, Q3W
     Route: 065
     Dates: start: 2020
  5. CYCLOPHOSPHAMIDE [Suspect]
     Active Substance: CYCLOPHOSPHAMIDE
     Dosage: UNK, CYCLIC, CUMULATIVE DOSE: 4 CYCLES, IMMUNOCHEMOTHERAPY (R-HYPER-CVAD)
     Route: 065
  6. DOXORUBICIN [Suspect]
     Active Substance: DOXORUBICIN
     Indication: High grade B-cell lymphoma Burkitt-like lymphoma
     Dosage: CUMULATIVE DOSE: 2 CYCLES, Q3W
     Route: 065
     Dates: start: 2020
  7. DOXORUBICIN [Suspect]
     Active Substance: DOXORUBICIN
     Dosage: CUMULATIVE DOSE: 4 CYCLES, IIMMUNOCHEMOTHERAPY (R-HYPER-CVAD)
     Route: 065
  8. DOXORUBICIN [Suspect]
     Active Substance: DOXORUBICIN
     Dosage: UNK, Q3W
     Route: 065
     Dates: start: 2020
  9. DEXAMETHASONE [Suspect]
     Active Substance: DEXAMETHASONE
     Indication: High grade B-cell lymphoma Burkitt-like lymphoma
     Dosage: UNK, CYCLIC, CUMULATIVE DOSE: 4 CYCLES, ~IMMUNOCHEMOTHERAPY (R-HYPER-CVAD), Q3W
     Route: 065
  10. DEXAMETHASONE [Suspect]
     Active Substance: DEXAMETHASONE
     Dosage: UNK, Q3W
     Route: 065
     Dates: start: 2020
  11. DEXAMETHASONE [Suspect]
     Active Substance: DEXAMETHASONE
     Dosage: UNK, Q3W
     Route: 065
     Dates: start: 2020
  12. METHOTREXATE [Suspect]
     Active Substance: METHOTREXATE
     Indication: High grade B-cell lymphoma Burkitt-like lymphoma
     Dosage: Q3W, CUMULATIVE DOSE: 4 CYCLES, ~IMMUNOCHEMOTHERAPY (R-HYPER-CVAD)
     Route: 065
  13. METHOTREXATE [Suspect]
     Active Substance: METHOTREXATE
     Dosage: UNK, Q3W
     Route: 065
     Dates: start: 2020
  14. PREDNISOLONE [Suspect]
     Active Substance: PREDNISOLONE
     Indication: Product used for unknown indication
     Dosage: CUMULATIVE DOSE: 2 CYCLES, Q3W
     Route: 065
     Dates: start: 2020
  15. PREDNISOLONE [Suspect]
     Active Substance: PREDNISOLONE
     Dosage: UNK, Q3W
     Route: 065
     Dates: start: 2020
  16. RITUXIMAB [Suspect]
     Active Substance: RITUXIMAB
     Indication: High grade B-cell lymphoma Burkitt-like lymphoma
     Dosage: CUMULATIVE DOSE: 2 CYCLES,Q3W
     Route: 065
  17. RITUXIMAB [Suspect]
     Active Substance: RITUXIMAB
     Dosage: CUMULATIVE DOSE: 4 CYCLES, ~IMMUNOCHEMOTHERAPY (R-HYPER-CVAD), Q3W
     Route: 065
  18. RITUXIMAB [Suspect]
     Active Substance: RITUXIMAB
     Dosage: UNK, Q3W
     Route: 065
     Dates: start: 2020
  19. RITUXIMAB [Suspect]
     Active Substance: RITUXIMAB
     Dosage: CUMULATIVE DOSE: 2 CYCLES
     Route: 065
  20. VINCRISTINE [Suspect]
     Active Substance: VINCRISTINE
     Indication: High grade B-cell lymphoma Burkitt-like lymphoma
     Dosage: UNK, Q3W, CUMULATIVE DOSE: 4 CYCLES RCHOP
     Route: 065
  21. VINCRISTINE [Suspect]
     Active Substance: VINCRISTINE
     Dosage: UNK, Q3W
     Route: 065
     Dates: start: 2020
  22. VINCRISTINE [Suspect]
     Active Substance: VINCRISTINE
     Dosage: UNK, Q3W, CUMULATIVE DOSE: 4 CYCLES RCHOP
     Route: 065

REACTIONS (5)
  - Neutropenia [Unknown]
  - Neutropenia [Unknown]
  - Myelosuppression [Unknown]
  - Intentional product use issue [Unknown]
  - Off label use [Unknown]
